FAERS Safety Report 8362884-4 (Version None)
Quarter: 2012Q2

REPORT INFORMATION
  Report Type: 
  Country: None (occurrence: None)
  Receive Date: 20120514
  Receipt Date: 20120514
  Transmission Date: 20120825
  Serious: No
  Sender: FDA-Public Use
  Company Number: None

PATIENT
  Age: 56 Year
  Sex: Female
  Weight: 47.1741 kg

DRUGS (1)
  1. DEXTROAMPHETAMINE [Suspect]
     Indication: ATTENTION DEFICIT/HYPERACTIVITY DISORDER
     Dosage: 5MG ONCE A DAY PO
     Route: 048
     Dates: start: 20120507, end: 20120510

REACTIONS (4)
  - TENSION HEADACHE [None]
  - VISION BLURRED [None]
  - FEELING ABNORMAL [None]
  - PALPITATIONS [None]
